FAERS Safety Report 24036633 (Version 6)
Quarter: 2025Q3

REPORT INFORMATION
  Report Type: Spontaneous
  Country: EU (occurrence: EU)
  Receive Date: 20240701
  Receipt Date: 20250728
  Transmission Date: 20251021
  Serious: Yes (Life-Threatening, Hospitalization)
  Sender: NOVARTIS
  Company Number: None

PATIENT
  Age: 52 Year
  Sex: Female
  Weight: 66.5 kg

DRUGS (15)
  1. TEGRETOL [Interacting]
     Active Substance: CARBAMAZEPINE
     Indication: Suicide attempt
     Dosage: 400 MG, QD
     Route: 048
  2. TEGRETOL [Interacting]
     Active Substance: CARBAMAZEPINE
     Indication: Temporal lobe epilepsy
     Route: 048
     Dates: start: 20240407, end: 20240407
  3. TEGRETOL [Interacting]
     Active Substance: CARBAMAZEPINE
     Indication: Toxicity to various agents
     Dosage: 400 MG, QD
     Route: 048
     Dates: start: 20240408
  4. CLOBAZAM [Interacting]
     Active Substance: CLOBAZAM
     Indication: Suicide attempt
     Route: 048
     Dates: start: 20240407, end: 20240407
  5. CLOBAZAM [Interacting]
     Active Substance: CLOBAZAM
     Indication: Temporal lobe epilepsy
     Dosage: 10 MG, Q8H
     Route: 048
     Dates: start: 20240408, end: 202404
  6. CLOBAZAM [Interacting]
     Active Substance: CLOBAZAM
     Indication: Prophylaxis
  7. FYCOMPA [Interacting]
     Active Substance: PERAMPANEL
     Indication: Suicide attempt
     Dosage: 8 MG, QD
     Route: 048
  8. FYCOMPA [Interacting]
     Active Substance: PERAMPANEL
     Indication: Temporal lobe epilepsy
     Route: 048
     Dates: start: 20240407, end: 20240407
  9. FYCOMPA [Interacting]
     Active Substance: PERAMPANEL
     Indication: Toxicity to various agents
     Dosage: 8 MG, QD
     Route: 048
     Dates: start: 202404
  10. CENOBAMATE [Interacting]
     Active Substance: CENOBAMATE
     Indication: Suicide attempt
     Dosage: 100 MG, QD
     Route: 048
  11. CENOBAMATE [Interacting]
     Active Substance: CENOBAMATE
     Indication: Temporal lobe epilepsy
     Route: 048
     Dates: start: 20240407, end: 20240407
  12. CENOBAMATE [Interacting]
     Active Substance: CENOBAMATE
     Indication: Toxicity to various agents
     Dosage: 100 MG, QD
     Route: 048
     Dates: start: 202404
  13. CLONAZEPAM [Suspect]
     Active Substance: CLONAZEPAM
     Indication: Angiopathy
     Route: 065
  14. PROPOFOL [Concomitant]
     Active Substance: PROPOFOL
     Indication: Sedative therapy
     Dosage: 200 MG, QH
     Route: 065
  15. LEVETIRACETAM [Concomitant]
     Active Substance: LEVETIRACETAM
     Indication: Angiopathy
     Dosage: 1000 MG, BID
     Route: 065

REACTIONS (9)
  - Toxicity to various agents [Recovered/Resolved]
  - Intentional overdose [Recovered/Resolved]
  - Drug interaction [Recovered/Resolved]
  - Coma [Recovered/Resolved]
  - Suicide attempt [Recovered/Resolved]
  - Anticholinergic syndrome [Recovered/Resolved]
  - Mydriasis [Recovered/Resolved]
  - Bradycardia [Unknown]
  - Product use in unapproved indication [Unknown]

NARRATIVE: CASE EVENT DATE: 20240407
